FAERS Safety Report 13001110 (Version 1)
Quarter: 2016Q4

REPORT INFORMATION
  Report Type: Spontaneous
  Country: GB (occurrence: GB)
  Receive Date: 20161206
  Receipt Date: 20161206
  Transmission Date: 20170207
  Serious: Yes (Disabling)
  Sender: FDA-Public Use
  Company Number: GB-HETERO LABS LTD-1060452

PATIENT
  Age: 68 Year
  Sex: Female

DRUGS (3)
  1. QUININE [Concomitant]
     Active Substance: QUININE
     Route: 065
     Dates: start: 20150311
  2. LOSARTAN. [Suspect]
     Active Substance: LOSARTAN
     Indication: HYPERTENSION
  3. ANALGESICS [Concomitant]
     Active Substance: UNSPECIFIED INGREDIENT
     Dates: start: 20150311, end: 20161018

REACTIONS (7)
  - Deep vein thrombosis [Recovered/Resolved]
  - Skin discolouration [Recovered/Resolved]
  - Neuralgia [Recovered/Resolved]
  - Sensation of blood flow [Recovered/Resolved]
  - Pain [Recovered/Resolved]
  - Erythema [Recovered/Resolved]
  - Skin hypertrophy [Unknown]

NARRATIVE: CASE EVENT DATE: 20160327
